FAERS Safety Report 22008958 (Version 3)
Quarter: 2023Q1

REPORT INFORMATION
  Report Type: Spontaneous
  Country: AU (occurrence: AU)
  Receive Date: 20230220
  Receipt Date: 20230331
  Transmission Date: 20230418
  Serious: Yes (Other)
  Sender: FDA-Public Use
  Company Number: AU-JNJFOC-20230235311

PATIENT
  Sex: Male

DRUGS (16)
  1. IMBRUVICA [Suspect]
     Active Substance: IBRUTINIB
     Indication: Mantle cell lymphoma
     Route: 048
     Dates: start: 202012
  2. VINCRISTINE [Suspect]
     Active Substance: VINCRISTINE
     Indication: Mantle cell lymphoma
     Dosage: AS A PART OF RCHOP REGIMEN
     Route: 065
     Dates: start: 2018
  3. DOXORUBICIN HYDROCHLORIDE [Suspect]
     Active Substance: DOXORUBICIN HYDROCHLORIDE
     Indication: Mantle cell lymphoma
     Dosage: AS A PART OF RCHOP REGIMEN
     Route: 065
     Dates: start: 2018
  4. PREDNISONE [Suspect]
     Active Substance: PREDNISONE
     Indication: Mantle cell lymphoma
     Dosage: AS A PART OF RCHOP REGIMEN
     Route: 065
     Dates: start: 2018
  5. RITUXIMAB [Suspect]
     Active Substance: RITUXIMAB
     Indication: Mantle cell lymphoma
     Dosage: AS A PART OF RBAC REGIMEN
     Route: 065
     Dates: start: 202107
  6. RITUXIMAB [Suspect]
     Active Substance: RITUXIMAB
     Indication: Mantle cell lymphoma
     Dosage: AS A PART OF RDHAOX/RCHOP REGIMEN
     Route: 065
     Dates: start: 2018
  7. CARMUSTINE [Suspect]
     Active Substance: CARMUSTINE
     Indication: Mantle cell lymphoma
     Dosage: AS A PART OF BEAM AUTO REGIMEN
     Route: 065
     Dates: start: 2018
  8. DEXAMETHASONE [Suspect]
     Active Substance: DEXAMETHASONE
     Indication: Mantle cell lymphoma
     Dosage: AS A PART OF RDHAOX REGIMEN
     Route: 065
     Dates: start: 2018
  9. OXALIPLATIN [Suspect]
     Active Substance: OXALIPLATIN
     Indication: Mantle cell lymphoma
     Dosage: AS A PART OF RDHAOX REGIMEN
     Route: 065
     Dates: start: 2018
  10. CYTARABINE [Suspect]
     Active Substance: CYTARABINE
     Indication: Mantle cell lymphoma
     Dosage: AS A PART OF RDHAOX REGIMEN
     Route: 065
     Dates: start: 2018, end: 2018
  11. CYTARABINE [Suspect]
     Active Substance: CYTARABINE
     Indication: Mantle cell lymphoma
     Dosage: AS A PART OF RBAC REGIMEN
     Route: 065
     Dates: start: 202107
  12. CYTARABINE [Suspect]
     Active Substance: CYTARABINE
     Indication: Mantle cell lymphoma
     Dosage: AS A PART OF BEAM AUTO REGIMEN
     Route: 065
     Dates: start: 2018
  13. BENDAMUSTINE [Suspect]
     Active Substance: BENDAMUSTINE
     Indication: Mantle cell lymphoma
     Dosage: AS A PART OF RBAC REGIMEN
     Route: 065
     Dates: start: 202107
  14. CYCLOPHOSPHAMIDE [Suspect]
     Active Substance: CYCLOPHOSPHAMIDE
     Indication: Mantle cell lymphoma
     Dosage: AS A PART OF RCHOP REGIMEN
     Route: 065
     Dates: start: 2018
  15. ETOPOSIDE [Suspect]
     Active Substance: ETOPOSIDE
     Indication: Mantle cell lymphoma
     Dosage: AS A PART OF BEAM AUTO REGIMEN
     Route: 065
     Dates: start: 2018
  16. MELPHALAN [Suspect]
     Active Substance: MELPHALAN
     Indication: Mantle cell lymphoma
     Dosage: AS A PART OF BEAM AUTO REGIMEN
     Route: 065
     Dates: start: 2018

REACTIONS (2)
  - Pancytopenia [Not Recovered/Not Resolved]
  - Mantle cell lymphoma recurrent [Unknown]

NARRATIVE: CASE EVENT DATE: 20230101
